FAERS Safety Report 5132460-5 (Version None)
Quarter: 2006Q4

REPORT INFORMATION
  Report Type: 
  Country: None (occurrence: None)
  Receive Date: 20061017
  Receipt Date: 20061009
  Transmission Date: 20070319
  Serious: Yes (Hospitalization, Other)
  Sender: FDA-Public Use
  Company Number: 27602-2

PATIENT
  Age: 66 Year
  Sex: Male
  Weight: 64 kg

DRUGS (1)
  1. DACARBAZINE [Suspect]
     Indication: METASTATIC MALIGNANT MELANOMA
     Dosage: 1730-1710MG/IV
     Route: 042
     Dates: start: 20051010, end: 20060501

REACTIONS (4)
  - AORTIC ANEURYSM RUPTURE [None]
  - BACK PAIN [None]
  - HAEMOGLOBIN DECREASED [None]
  - HYPERTENSION [None]
